FAERS Safety Report 8136699-6 (Version None)
Quarter: 2012Q1

REPORT INFORMATION
  Report Type: 
  Country: None (occurrence: None)
  Receive Date: 20120214
  Receipt Date: 20120130
  Transmission Date: 20120608
  Serious: Yes (Other)
  Sender: FDA-Public Use
  Company Number: JP-WATSON-2012-02225

PATIENT
  Age: 81 Year
  Sex: Female

DRUGS (1)
  1. LOSARTAN POTASSIUM [Suspect]
     Indication: PRODUCT USED FOR UNKNOWN INDICATION
     Route: 065

REACTIONS (2)
  - RASH MACULO-PAPULAR [None]
  - DRUG ERUPTION [None]
